FAERS Safety Report 24767373 (Version 2)
Quarter: 2025Q3

REPORT INFORMATION
  Report Type: Spontaneous
  Country: JP (occurrence: JP)
  Receive Date: 20241223
  Receipt Date: 20250810
  Transmission Date: 20251021
  Serious: Yes (Hospitalization, Other)
  Sender: ALEXION PHARMACEUTICALS
  Company Number: JP-ASTRAZENECA-220070691_013020_P_1

PATIENT
  Age: 45 Year
  Sex: Male
  Weight: 68 kg

DRUGS (10)
  1. TAGRISSO [Suspect]
     Active Substance: OSIMERTINIB
     Indication: Non-small cell lung cancer
     Dosage: 80 MILLIGRAM, QD
     Dates: start: 20221015, end: 20221114
  2. NEXIUM [Suspect]
     Active Substance: ESOMEPRAZOLE MAGNESIUM
     Indication: Prophylaxis
     Dosage: DOSE UNKNOWN
     Dates: start: 20221005, end: 20230605
  3. LEVETIRACETAM [Suspect]
     Active Substance: LEVETIRACETAM
     Indication: Metastases to central nervous system
     Dosage: 500 MILLIGRAM, BID
     Dates: start: 20221001, end: 20221121
  4. CALCIUM CARBONATE\CHOLECALCIFEROL\MAGNESIUM CARBONATE [Concomitant]
     Active Substance: CALCIUM CARBONATE\CHOLECALCIFEROL\MAGNESIUM CARBONATE
     Indication: Metastases to bone
     Dosage: 3 DOSAGE FORM, QD
     Dates: start: 20221007
  5. DECADRON [Concomitant]
     Active Substance: DEXAMETHASONE
     Indication: Metastases to central nervous system
     Dosage: DOSE UNKNOWN
     Dates: start: 20221031, end: 20221213
  6. DECADRON [Concomitant]
     Active Substance: DEXAMETHASONE
     Indication: Metastases to central nervous system
  7. ISOSORBIDE [Concomitant]
     Active Substance: ISOSORBIDE
     Indication: Metastases to central nervous system
     Dosage: 50 MILLILITER, BID
     Dates: start: 20221027, end: 20221121
  8. ISOSORBIDE [Concomitant]
     Active Substance: ISOSORBIDE
     Indication: Metastases to central nervous system
  9. DENOSUMAB [Concomitant]
     Active Substance: DENOSUMAB
     Indication: Metastases to bone
     Dosage: 120 MILLIGRAM, UNK, FREQUENCY: Q4WK
     Dates: start: 20221006
  10. HIRDSYN [Concomitant]
     Indication: Prophylaxis
     Route: 065

REACTIONS (4)
  - Erythema multiforme [Recovered/Resolved]
  - Eosinophil count increased [Recovered/Resolved]
  - COVID-19 [Recovered/Resolved]
  - Off label use [Unknown]

NARRATIVE: CASE EVENT DATE: 20221107
